FAERS Safety Report 17052684 (Version 1)
Quarter: 2019Q4

REPORT INFORMATION
  Report Type: Spontaneous
  Country: US (occurrence: US)
  Receive Date: 20191021
  Receipt Date: 20191021
  Transmission Date: 20200122
  Serious: Yes (Hospitalization)
  Sender: FDA-Public Use
  Company Number: None

PATIENT
  Age: 79 Year
  Sex: Male
  Weight: 32.21 kg

DRUGS (2)
  1. IOHEXOL [Suspect]
     Active Substance: IOHEXOL
     Indication: ACUTE KIDNEY INJURY
     Route: 042
     Dates: start: 20190708, end: 20190708
  2. IOHEXOL [Suspect]
     Active Substance: IOHEXOL
     Indication: CHEST PAIN

REACTIONS (4)
  - Palpitations [None]
  - Pain [None]
  - Dizziness [None]
  - Acute kidney injury [None]

NARRATIVE: CASE EVENT DATE: 20190708
